FAERS Safety Report 14444635 (Version 1)
Quarter: 2018Q1

REPORT INFORMATION
  Report Type: Spontaneous
  Country: US (occurrence: US)
  Receive Date: 20180125
  Receipt Date: 20180125
  Transmission Date: 20180509
  Serious: No
  Sender: FDA-Public Use
  Company Number: None

PATIENT

DRUGS (1)
  1. METHYLPHENIDATE ER 36MG [Suspect]
     Active Substance: METHYLPHENIDATE
     Indication: ATTENTION DEFICIT/HYPERACTIVITY DISORDER

REACTIONS (3)
  - Product substitution issue [None]
  - Drug ineffective [None]
  - Educational problem [None]

NARRATIVE: CASE EVENT DATE: 20180108
